FAERS Safety Report 8354757-8 (Version None)
Quarter: 2012Q2

REPORT INFORMATION
  Report Type: 
  Country: None (occurrence: None)
  Receive Date: 20120511
  Receipt Date: 20120504
  Transmission Date: 20120825
  Serious: Yes (Hospitalization)
  Sender: FDA-Public Use
  Company Number: FR-GLAXOSMITHKLINE-B0799595A

PATIENT
  Sex: Female

DRUGS (7)
  1. MODOPAR [Suspect]
     Dosage: 125MG FIVE TIMES PER DAY
     Route: 048
     Dates: end: 20120101
  2. TASMAR [Suspect]
     Indication: PRODUCT USED FOR UNKNOWN INDICATION
     Route: 065
  3. AZILECT [Suspect]
     Indication: PRODUCT USED FOR UNKNOWN INDICATION
     Route: 065
  4. REQUIP [Suspect]
     Indication: PARKINSON'S DISEASE
     Dosage: 24MG PER DAY
     Route: 065
     Dates: end: 20120114
  5. MODOPAR [Suspect]
     Dosage: 250MG PER DAY
     Route: 048
     Dates: end: 20120101
  6. MODOPAR [Suspect]
     Indication: PARKINSON'S DISEASE
     Dosage: 62.5MG IN THE MORNING
     Route: 048
     Dates: end: 20120101
  7. MODOPAR [Suspect]
     Dosage: 250MG AT NIGHT
     Route: 048
     Dates: end: 20120101

REACTIONS (3)
  - ON AND OFF PHENOMENON [None]
  - DYSKINESIA [None]
  - DELIRIUM [None]
